FAERS Safety Report 8559454-1 (Version None)
Quarter: 2012Q3

REPORT INFORMATION
  Report Type: 
  Country: None (occurrence: None)
  Receive Date: 20120802
  Receipt Date: 20120730
  Transmission Date: 20120928
  Serious: Yes (Other)
  Sender: FDA-Public Use
  Company Number: DE-B.I. PHARMACEUTICALS,INC./RIDGEFIELD-2012-DE-01774DE

PATIENT
  Age: 88 Year
  Sex: Male

DRUGS (1)
  1. AGGRENOX [Suspect]
     Dates: start: 20110101

REACTIONS (2)
  - VISUAL FIELD DEFECT [None]
  - HAEMORRHAGE [None]
